FAERS Safety Report 6998389-2 (Version None)
Quarter: 2010Q3

REPORT INFORMATION
  Report Type: 
  Country: None (occurrence: None)
  Receive Date: 20100920
  Receipt Date: 20100907
  Transmission Date: 20110219
  Serious: Yes (Hospitalization)
  Sender: FDA-Public Use
  Company Number: US-JNJFOC-20100608562

PATIENT
  Sex: Female
  Weight: 25.9 kg

DRUGS (7)
  1. REMICADE [Suspect]
     Indication: COLITIS ULCERATIVE
     Route: 042
  2. REMICADE [Suspect]
     Route: 042
  3. REMICADE [Suspect]
     Route: 042
  4. AZATHIOPRINE [Concomitant]
  5. PREDNISONE [Concomitant]
  6. ASACOL [Concomitant]
  7. PRILOSEC [Concomitant]

REACTIONS (2)
  - COLITIS ULCERATIVE [None]
  - DRUG INEFFECTIVE [None]
